FAERS Safety Report 4417535-8 (Version None)
Quarter: 2004Q3

REPORT INFORMATION
  Report Type: 
  Country: None (occurrence: None)
  Receive Date: 20040804
  Receipt Date: 20040720
  Transmission Date: 20050211
  Serious: Yes (Other)
  Sender: FDA-Public Use
  Company Number: 002123

PATIENT
  Age: 46 Year
  Sex: Female

DRUGS (5)
  1. MEDROXYPROGESTERONE ACETATE [Suspect]
     Dates: start: 20020225, end: 20030625
  2. MEDROXYPROGESTERONE ACETATE [Suspect]
     Dates: start: 19980421, end: 19990421
  3. PREMARIN [Suspect]
     Dates: start: 19990421, end: 20030707
  4. PROVERA [Suspect]
  5. CYCRIN [Suspect]
     Dates: start: 19980518, end: 20011231

REACTIONS (1)
  - BREAST CANCER FEMALE [None]
